FAERS Safety Report 14558583 (Version 4)
Quarter: 2018Q3

REPORT INFORMATION
  Report Type: Not Available
  Country: US (occurrence: US)
  Receive Date: 20180221
  Receipt Date: 20180713
  Transmission Date: 20181010
  Serious: No
  Sender: FDA-Public Use
  Company Number: US-NEUROCRINE BIOSCIENCES INC.-2018NBI00173

PATIENT
  Age: 65 Year
  Sex: Male

DRUGS (6)
  1. DIAZEPAM. [Suspect]
     Active Substance: DIAZEPAM
     Indication: BRUXISM
  2. CYMBALTA [Concomitant]
     Active Substance: DULOXETINE HYDROCHLORIDE
     Indication: DEPRESSION
     Dosage: EVERY NIGHT
  3. TAMSULOSIN [Concomitant]
     Active Substance: TAMSULOSIN
  4. LYRICA [Concomitant]
     Active Substance: PREGABALIN
     Indication: SEIZURE
  5. ADDERALL [Concomitant]
     Active Substance: AMPHETAMINE ASPARTATE\AMPHETAMINE SULFATE\DEXTROAMPHETAMINE SACCHARATE\DEXTROAMPHETAMINE SULFATE
     Indication: CENTRAL NERVOUS SYSTEM STIMULATION
     Dosage: 5:30 AM AND 630 AM
  6. INGREZZA [Suspect]
     Active Substance: VALBENAZINE
     Indication: BRUXISM
     Route: 048
     Dates: start: 20171228, end: 20180524

REACTIONS (3)
  - Dyskinesia [Recovered/Resolved]
  - Confusional state [Not Recovered/Not Resolved]
  - Fatigue [Not Recovered/Not Resolved]

NARRATIVE: CASE EVENT DATE: 201712
